FAERS Safety Report 8765989 (Version 4)
Quarter: 2012Q4

REPORT INFORMATION
  Report Type: 
  Country: US (occurrence: US)
  Receive Date: 20120904
  Receipt Date: 20120914
  Transmission Date: 20130627
  Serious: Yes (Hospitalization)
  Sender: FDA-Public Use
  Company Number: US-GILEAD-2012-0060642

PATIENT
  Age: 31 Year
  Sex: Male

DRUGS (1)
  1. LETAIRIS [Suspect]
     Indication: CONGENITAL PULMONARY HYPERTENSION
     Dosage: 10 mg, UNK
     Route: 048
     Dates: start: 20111202

REACTIONS (1)
  - Pneumonia [Unknown]
